FAERS Safety Report 4766271-7 (Version None)
Quarter: 2005Q3

REPORT INFORMATION
  Report Type: 
  Country: None (occurrence: None)
  Receive Date: 20050912
  Receipt Date: 20050902
  Transmission Date: 20060218
  Serious: Yes (Other)
  Sender: FDA-Public Use
  Company Number: PHEH2005US09873

PATIENT
  Age: 83 Year
  Sex: Male

DRUGS (3)
  1. ZOMETA [Suspect]
     Dosage: 3MG Q4WK
     Route: 042
     Dates: start: 20050201, end: 20050902
  2. TAXOTERE [Concomitant]
  3. STEROIDS NOS [Concomitant]

REACTIONS (2)
  - ASEPTIC NECROSIS BONE [None]
  - TOOTHACHE [None]
